FAERS Safety Report 4954343-3 (Version None)
Quarter: 2006Q1

REPORT INFORMATION
  Report Type: 
  Country: None (occurrence: None)
  Receive Date: 20060327
  Receipt Date: 20060316
  Transmission Date: 20060701
  Serious: Yes (Hospitalization)
  Sender: FDA-Public Use
  Company Number: US-JNJFOC-20060304087

PATIENT
  Sex: Female

DRUGS (16)
  1. INFLIXIMAB [Suspect]
     Indication: RHEUMATOID ARTHRITIS
     Route: 042
  2. COREG [Concomitant]
  3. LEVOXYL [Concomitant]
  4. PROTONIX [Concomitant]
  5. FOLIC ACID [Concomitant]
  6. LASIX [Concomitant]
  7. GLUCOTROL [Concomitant]
  8. LANOXIN [Concomitant]
  9. COUMADIN [Concomitant]
  10. ZOCOR [Concomitant]
  11. ADVAIR DISKUS 100/50 [Concomitant]
  12. ADVAIR DISKUS 100/50 [Concomitant]
  13. SPIRIVA [Concomitant]
  14. METOLAZONE [Concomitant]
     Dosage: 2.5 MG, 1/2 TABLET DAILY
  15. SPIRONOLACTONE [Concomitant]
  16. CALTRATE [Concomitant]

REACTIONS (4)
  - ATRIAL FIBRILLATION [None]
  - BLOOD GLUCOSE INCREASED [None]
  - CARDIAC FAILURE CONGESTIVE [None]
  - PNEUMONIA [None]
